FAERS Safety Report 19310639 (Version 1)
Quarter: 2021Q2

REPORT INFORMATION
  Report Type: Spontaneous
  Country: ES (occurrence: ES)
  Receive Date: 20210526
  Receipt Date: 20210526
  Transmission Date: 20210717
  Serious: Yes (Other)
  Sender: FDA-Public Use
  Company Number: ES-BAYER-2021-142343

PATIENT
  Age: 62 Year
  Sex: Female
  Weight: 73 kg

DRUGS (11)
  1. VIBRACINA [Suspect]
     Active Substance: DOXYCYCLINE
     Dosage: UNK
  2. EZETROL [Concomitant]
     Active Substance: EZETIMIBE
     Dosage: UNK
  3. CEPHALOSPORIN NOS [Suspect]
     Active Substance: UNSPECIFIED INGREDIENT
     Dosage: UNK
  4. PRALUENT [Concomitant]
     Active Substance: ALIROCUMAB
     Dosage: UNK
  5. PENICILLIN NOS [Suspect]
     Active Substance: PENICILLIN
     Dosage: UNK
  6. TETRACYCLINE [Suspect]
     Active Substance: TETRACYCLINE
     Dosage: UNK
  7. ATORVASTATINA [ATORVASTATIN] [Suspect]
     Active Substance: ATORVASTATIN
     Dosage: UNK
  8. CAPSAICIN. [Suspect]
     Active Substance: CAPSAICIN
     Dosage: UNK
  9. ENANTYUM [Concomitant]
     Active Substance: DEXKETOPROFEN TROMETAMOL
     Dosage: UNK
  10. CEFUROXIMA [CEFUROXIME] [Suspect]
     Active Substance: CEFUROXIME
     Dosage: UNK
  11. CIPROFLOXACIN. [Suspect]
     Active Substance: CIPROFLOXACIN
     Dosage: UNK

REACTIONS (8)
  - Rash pruritic [Unknown]
  - Chest discomfort [Unknown]
  - Tachycardia [Unknown]
  - Movement disorder [Unknown]
  - Musculoskeletal disorder [Unknown]
  - Urticaria contact [Unknown]
  - Headache [Unknown]
  - Rash [Unknown]
